FAERS Safety Report 8243445-4 (Version None)
Quarter: 2012Q1

REPORT INFORMATION
  Report Type: 
  Country: None (occurrence: None)
  Receive Date: 20120329
  Receipt Date: 20120320
  Transmission Date: 20120608
  Serious: Yes (Hospitalization, Disabling, Other)
  Sender: FDA-Public Use
  Company Number: US-MUTUAL PHARMACEUTICAL COMPANY, INC.-CLCY20120047

PATIENT
  Sex: Female
  Weight: 72.64 kg

DRUGS (3)
  1. ADVAIR DISKUS 100/50 [Concomitant]
     Route: 065
  2. COLCRYS [Suspect]
     Route: 048
     Dates: end: 20120319
  3. DIOVAN [Concomitant]
     Route: 065

REACTIONS (7)
  - ASTHENIA [None]
  - LEUKAEMIA [None]
  - FATIGUE [None]
  - HYPOAESTHESIA [None]
  - DEHYDRATION [None]
  - DIARRHOEA [None]
  - PARAESTHESIA [None]
